FAERS Safety Report 5646750-0 (Version None)
Quarter: 2008Q1

REPORT INFORMATION
  Report Type: 
  Country: None (occurrence: None)
  Receive Date: 20080303
  Receipt Date: 20080222
  Transmission Date: 20080703
  Serious: Yes (Hospitalization, Other)
  Sender: FDA-Public Use
  Company Number: GB-ROCHE-525343

PATIENT
  Age: 46 Year
  Sex: Female
  Weight: 115.6 kg

DRUGS (11)
  1. ORLISTAT [Suspect]
     Indication: OBESITY
     Route: 048
     Dates: start: 20070929
  2. ANTIDEPRESSANTS [Concomitant]
  3. SIMVASTATIN [Concomitant]
     Route: 048
  4. RAMIPRIL [Concomitant]
     Route: 048
  5. LANSOPRAZOLE [Concomitant]
     Indication: UNEVALUABLE EVENT
     Route: 048
  6. METFORMIN HCL [Concomitant]
  7. ROSIGLITAZONE [Concomitant]
  8. FERROUS SULFATE TAB [Concomitant]
     Indication: ANAEMIA
  9. RISPERIDONE [Concomitant]
     Indication: DEPRESSION
     Dosage: REPORTED AS RISPERADOL.
  10. PHENELZINE [Concomitant]
  11. AVANDAMET [Concomitant]

REACTIONS (2)
  - DRUG WITHDRAWAL SYNDROME [None]
  - SUICIDAL IDEATION [None]
